FAERS Safety Report 15998303 (Version 1)
Quarter: 2019Q1

REPORT INFORMATION
  Report Type: Report from Study
  Country: CN (occurrence: CN)
  Receive Date: 20190223
  Receipt Date: 20190223
  Transmission Date: 20190418
  Serious: Yes (Death, Other)
  Sender: FDA-Public Use
  Company Number: CN-AMGEN-CHNCT2019028121

PATIENT
  Age: 57 Year
  Sex: Male

DRUGS (12)
  1. CINACALCET HCL [Suspect]
     Active Substance: CINACALCET HYDROCHLORIDE
     Dosage: 25 MG, UNK
     Route: 048
     Dates: start: 20180920, end: 20190114
  2. L-CARNITINE [Concomitant]
     Active Substance: LEVOCARNITINE
     Indication: HYPERLIPIDAEMIA
     Dosage: 1 G, TID
     Route: 042
     Dates: start: 20180209, end: 20190215
  3. CINACALCET HCL [Suspect]
     Active Substance: CINACALCET HYDROCHLORIDE
     Dosage: 50 MG, UNK
     Route: 048
     Dates: start: 20180419, end: 20180419
  4. EPOETIN ALFA [Concomitant]
     Active Substance: ERYTHROPOIETIN
     Indication: NEPHROGENIC ANAEMIA
     Dosage: 5000 UNIT, QWK
     Route: 058
     Dates: start: 20121101, end: 20190215
  5. CINACALCET HCL [Suspect]
     Active Substance: CINACALCET HYDROCHLORIDE
     Indication: HYPERPARATHYROIDISM SECONDARY
     Dosage: 25 MG, UNK
     Route: 048
     Dates: start: 20180322, end: 20180418
  6. CINACALCET HCL [Suspect]
     Active Substance: CINACALCET HYDROCHLORIDE
     Dosage: 50 MG, UNK
     Route: 048
     Dates: start: 20190115, end: 20190115
  7. SODIUM BICARBONATE. [Concomitant]
     Active Substance: SODIUM BICARBONATE
     Indication: ACIDOSIS
     Dosage: 0.5 G, TID
     Route: 048
     Dates: start: 20080306, end: 20190215
  8. CALCIUM ACETATE HYDROUS [Concomitant]
     Indication: HYPERLIPIDAEMIA
     Dosage: 1.334 G, TID
     Route: 048
     Dates: start: 20180223, end: 20190215
  9. PARICALCITOL. [Concomitant]
     Active Substance: PARICALCITOL
     Indication: HYPERPARATHYROIDISM SECONDARY
     Dosage: 1 ML, BID
     Route: 042
     Dates: start: 20180227, end: 20190215
  10. VALSARTAN. [Concomitant]
     Active Substance: VALSARTAN
     Indication: HYPERTENSION
     Dosage: 80 MG, BID
     Route: 048
     Dates: start: 20080306, end: 20190215
  11. BISOPROLOL [Concomitant]
     Active Substance: BISOPROLOL
     Indication: HYPERTENSION
     Dosage: 10 MG, QD
     Route: 048
     Dates: start: 20110419, end: 20190215
  12. CALCITRIOL. [Concomitant]
     Active Substance: CALCITRIOL
     Indication: HYPERPARATHYROIDISM SECONDARY
     Dosage: 0.5 MUG, QD
     Route: 048
     Dates: start: 20080306, end: 20190215

REACTIONS (1)
  - Sudden death [Fatal]

NARRATIVE: CASE EVENT DATE: 20190216
